FAERS Safety Report 7908936-1 (Version None)
Quarter: 2011Q4

REPORT INFORMATION
  Report Type: 
  Country: None (occurrence: None)
  Receive Date: 20111108
  Receipt Date: 20111025
  Transmission Date: 20120403
  Serious: Yes (Other)
  Sender: FDA-Public Use
  Company Number: 2011SP050224

PATIENT

DRUGS (2)
  1. TEMODAL [Suspect]
     Indication: GLIOBLASTOMA MULTIFORME
     Dosage: 150 MG/M2
     Dates: start: 20100601
  2. BEVACIZUMAB (BEVACIZUMAB) [Suspect]
     Indication: GLIOBLASTOMA MULTIFORME
     Dosage: 10 MG/KG
     Dates: start: 20100601

REACTIONS (7)
  - UPPER RESPIRATORY TRACT INFECTION [None]
  - HAEMORRHAGE INTRACRANIAL [None]
  - OLFACTORY NERVE DISORDER [None]
  - TOXICITY TO VARIOUS AGENTS [None]
  - URINARY TRACT INFECTION [None]
  - ENTERITIS [None]
  - THROMBOSIS [None]
